FAERS Safety Report 15327141 (Version 1)
Quarter: 2018Q3

REPORT INFORMATION
  Report Type: Spontaneous
  Country: US (occurrence: US)
  Receive Date: 20180823
  Receipt Date: 20180823
  Transmission Date: 20181010
  Serious: Yes (Other)
  Sender: FDA-Public Use
  Company Number: None

PATIENT
  Age: 65 Year
  Sex: Male
  Weight: 67 kg

DRUGS (4)
  1. TRAMETINIB [Concomitant]
     Active Substance: TRAMETINIB
     Dates: start: 20150715, end: 20160701
  2. DABRAFENIB [Suspect]
     Active Substance: DABRAFENIB
     Indication: ERDHEIM-CHESTER DISEASE
     Route: 048
     Dates: start: 20180205, end: 20180717
  3. TRAMETINIB [Suspect]
     Active Substance: TRAMETINIB
     Indication: ERDHEIM-CHESTER DISEASE
     Route: 048
     Dates: start: 20180205, end: 20180717
  4. DABRAFENIB [Concomitant]
     Active Substance: DABRAFENIB
     Dates: start: 20150715, end: 20160701

REACTIONS (2)
  - Rhabdomyolysis [None]
  - Drug hypersensitivity [None]

NARRATIVE: CASE EVENT DATE: 20180714
